FAERS Safety Report 6392574-9 (Version None)
Quarter: 2009Q4

REPORT INFORMATION
  Report Type: 
  Country: None (occurrence: None)
  Receive Date: 20091007
  Receipt Date: 20090707
  Transmission Date: 20100525
  Serious: No
  Sender: FDA-Public Use
  Company Number: US-ALLERGAN-0908488US

PATIENT
  Sex: Female

DRUGS (3)
  1. LATISSE [Suspect]
     Indication: GROWTH OF EYELASHES
     Dosage: UNK, UNK
     Dates: start: 20090327, end: 20090617
  2. LATISSE [Suspect]
     Dosage: 1 GTT, SINGLE
     Route: 061
  3. LATISSE [Suspect]
     Dosage: UNK, BID

REACTIONS (5)
  - ASTHENOPIA [None]
  - HAIR GROWTH ABNORMAL [None]
  - HAIR TEXTURE ABNORMAL [None]
  - INCORRECT DOSE ADMINISTERED [None]
  - THERAPEUTIC RESPONSE DECREASED [None]
